FAERS Safety Report 25206331 (Version 2)
Quarter: 2025Q2

REPORT INFORMATION
  Report Type: Spontaneous
  Country: US (occurrence: US)
  Receive Date: 20250417
  Receipt Date: 20250423
  Transmission Date: 20250717
  Serious: Yes (Life-Threatening, Hospitalization, Other)
  Sender: SANOFI AVENTIS
  Company Number: US-SA-2025SA109603

PATIENT
  Age: 75 Year
  Sex: Female

DRUGS (5)
  1. AUBAGIO [Suspect]
     Active Substance: TERIFLUNOMIDE
     Indication: Multiple sclerosis
     Dosage: 14 MG, QD
     Route: 048
     Dates: start: 20140429
  2. BETASERON [Concomitant]
     Active Substance: INTERFERON BETA-1B
     Dates: start: 20140424, end: 20140427
  3. REBIF [Concomitant]
     Active Substance: INTERFERON BETA-1A
     Dates: start: 20140424, end: 20140424
  4. TECFIDERA [Concomitant]
     Active Substance: DIMETHYL FUMARATE
     Dates: start: 20140424, end: 20140424
  5. AVONEX [Concomitant]
     Active Substance: INTERFERON BETA-1A
     Dates: start: 20140424, end: 20140424

REACTIONS (1)
  - Cerebrovascular accident [Unknown]
